FAERS Safety Report 24551985 (Version 1)
Quarter: 2024Q4

REPORT INFORMATION
  Report Type: Spontaneous
  Country: HR (occurrence: HR)
  Receive Date: 20241026
  Receipt Date: 20241026
  Transmission Date: 20250115
  Serious: Yes (Other)
  Sender: TAKEDA
  Company Number: HR-TAKEDA-2024TUS108058

PATIENT
  Age: 64 Year
  Sex: Female

DRUGS (5)
  1. FEBUXOSTAT [Suspect]
     Active Substance: FEBUXOSTAT
     Indication: Blood uric acid increased
     Dosage: UNK
     Route: 048
     Dates: start: 2024, end: 2024
  2. BISOPROLOL FUMARATE [Concomitant]
     Active Substance: BISOPROLOL FUMARATE
     Dosage: 2.5 MILLIGRAM, QD
     Route: 048
     Dates: start: 2023
  3. MEDROL [Concomitant]
     Active Substance: METHYLPREDNISOLONE
     Indication: Polymyalgia rheumatica
     Dosage: 4 MILLIGRAM, QD
     Route: 048
     Dates: start: 2022
  4. Val [Concomitant]
     Indication: Hypertension
     Dosage: 80 MILLIGRAM, QD
     Route: 048
     Dates: start: 202405
  5. Val [Concomitant]
     Dosage: UNK
     Route: 048

REACTIONS (3)
  - Hypertensive crisis [Recovered/Resolved]
  - Tinnitus [Recovered/Resolved]
  - Feeling abnormal [Recovered/Resolved]

NARRATIVE: CASE EVENT DATE: 20240101
